FAERS Safety Report 23286833 (Version 1)
Quarter: 2023Q4

REPORT INFORMATION
  Report Type: Spontaneous
  Country: US (occurrence: None)
  Receive Date: 20231209
  Receipt Date: 20231209
  Transmission Date: 20240110
  Serious: Yes (Other)
  Sender: FDA-Public Use
  Company Number: None

PATIENT
  Age: 52 Year
  Sex: Male
  Weight: 90 kg

DRUGS (1)
  1. VISINE RED EYE COMFORT [Suspect]
     Active Substance: TETRAHYDROZOLINE HYDROCHLORIDE
     Indication: Ocular hyperaemia
     Dosage: FREQUENCY : AS NEEDED;?
     Route: 047
     Dates: start: 20231208, end: 20231208

REACTIONS (2)
  - Ocular hyperaemia [None]
  - Eyelid margin crusting [None]

NARRATIVE: CASE EVENT DATE: 20231208
